FAERS Safety Report 10777107 (Version 9)
Quarter: 2015Q2

REPORT INFORMATION
  Report Type: Spontaneous
  Country: US (occurrence: US)
  Receive Date: 20150209
  Receipt Date: 20150619
  Transmission Date: 20150821
  Serious: No
  Sender: FDA-Public Use
  Company Number: US-PFIZER INC-2015050654

PATIENT
  Age: 66 Year
  Sex: Male
  Weight: 97 kg

DRUGS (4)
  1. INLYTA [Suspect]
     Active Substance: AXITINIB
     Indication: METASTATIC RENAL CELL CARCINOMA
     Dosage: 5 MG, 2X/DAY (10 MG DAILY)
     Route: 048
     Dates: start: 20140819
  2. INLYTA [Suspect]
     Active Substance: AXITINIB
     Dosage: 14 MG, DAILY
     Route: 048
  3. INLYTA [Suspect]
     Active Substance: AXITINIB
     Dosage: 20 MG, DAILY
     Route: 048
  4. INLYTA [Suspect]
     Active Substance: AXITINIB
     Dosage: UNK, DAILY
     Route: 048
     Dates: end: 20150131

REACTIONS (2)
  - Disease progression [Not Recovered/Not Resolved]
  - Metastatic renal cell carcinoma [Not Recovered/Not Resolved]

NARRATIVE: CASE EVENT DATE: 20140908
